FAERS Safety Report 20126070 (Version 1)
Quarter: 2021Q4

REPORT INFORMATION
  Report Type: Spontaneous
  Country: US (occurrence: US)
  Receive Date: 20211129
  Receipt Date: 20211129
  Transmission Date: 20220303
  Serious: No
  Sender: FDA-Public Use
  Company Number: US-CELGENE-USA-20211105307

PATIENT
  Sex: Female

DRUGS (1)
  1. INREBIC [Suspect]
     Active Substance: FEDRATINIB HYDROCHLORIDE
     Indication: Myelofibrosis
     Dosage: 100 MILLIGRAM
     Route: 048
     Dates: start: 20201103

REACTIONS (3)
  - Product dose omission issue [Unknown]
  - Nasopharyngitis [Unknown]
  - Cough [Unknown]
